FAERS Safety Report 8942375 (Version 1)
Quarter: 2012Q4

REPORT INFORMATION
  Report Type: Spontaneous
  Country: US (occurrence: None)
  Receive Date: 20121121
  Receipt Date: 20121121
  Transmission Date: 20130627
  Serious: Yes (Other)
  Sender: FDA-Public Use
  Company Number: 110109007009

PATIENT
  Age: 49 Year
  Sex: Male

DRUGS (11)
  1. DEXAMETHASONE [Suspect]
     Indication: POST PROCEDURAL INFLAMMATION
     Route: 031
     Dates: start: 20120813
  2. PROPARACAINE [Concomitant]
  3. TROPICAMIDE [Concomitant]
  4. VIGAMOX [Concomitant]
  5. PHENYLEPHRINE [Concomitant]
  6. CYCLOGYL [Concomitant]
  7. BETADINE [Concomitant]
  8. DIAMOX [Concomitant]
  9. VERSED [Concomitant]
  10. TETRAVISC [Concomitant]
  11. BRIMONIDINE [Concomitant]

REACTIONS (2)
  - Corneal endothelial cell loss [None]
  - Corneal disorder [None]
